FAERS Safety Report 15890023 (Version 3)
Quarter: 2019Q4

REPORT INFORMATION
  Report Type: Other
  Country: PT (occurrence: PT)
  Receive Date: 20190130
  Receipt Date: 20191104
  Transmission Date: 20200122
  Serious: Yes (Death)
  Sender: FDA-Public Use
  Company Number: PT-HQ SPECIALTY-PT-2019INT000018

PATIENT
  Age: 84 Year
  Sex: Male

DRUGS (23)
  1. BISOPROLOL [Concomitant]
     Active Substance: BISOPROLOL
     Indication: PRODUCT USED FOR UNKNOWN INDICATION
     Dosage: 5 MG/20 ML, QD (5 MG, 1 IN 1 D)
     Route: 065
     Dates: start: 20181222, end: 20181222
  2. TIAPRIDE [Concomitant]
     Active Substance: TIAPRIDE
     Indication: PRODUCT USED FOR UNKNOWN INDICATION
     Dosage: 100 MG/2 ML (300 MG, 1D)
     Route: 065
     Dates: start: 20181217, end: 20181218
  3. AMIODARONE [Concomitant]
     Active Substance: AMIODARONE
     Indication: PRODUCT USED FOR UNKNOWN INDICATION
     Dosage: 18 DECEMBER: 1H, 1.06 ML/H AND 17H, 2.08 ML/H; 19 DECEMBER: 4H, 2.08 ML/H
     Route: 065
     Dates: start: 20181218, end: 20181219
  4. ALFENTANIL. [Concomitant]
     Active Substance: ALFENTANIL
     Indication: PRODUCT USED FOR UNKNOWN INDICATION
     Dosage: COMPLEX DOSAGE REGIMEN: SEE ATTACHED DOSAGE TABLE
     Route: 065
     Dates: start: 20181215
  5. INSULIN HUMAN [Concomitant]
     Active Substance: INSULIN HUMAN
     Dosage: AFTER 20 DECEMBER: 16 IU (16 IU)
     Route: 065
     Dates: start: 20181220
  6. CAPTOPRIL. [Concomitant]
     Active Substance: CAPTOPRIL
     Dosage: 50 MG, (50 MG)
     Route: 060
     Dates: start: 20181221
  7. PANTOPRAZOLE [Concomitant]
     Active Substance: PANTOPRAZOLE
     Indication: PRODUCT USED FOR UNKNOWN INDICATION
     Dosage: 40 MG/10 ML QD; (40 MG 1 D)
     Route: 065
     Dates: start: 20181215
  8. AMOXICILLINA ACIDO CLAV. [Concomitant]
     Active Substance: AMOXICILLIN\CLAVULANATE POTASSIUM
     Indication: PRODUCT USED FOR UNKNOWN INDICATION
     Dosage: 1200 MG/20 ML (3600 MG)
     Route: 065
     Dates: start: 20181215, end: 20181222
  9. DEXMEDETOMIDINE HYDROCHLORIDE. [Suspect]
     Active Substance: DEXMEDETOMIDINE HYDROCHLORIDE
     Indication: SEDATION
     Dosage: COMPLEX DOSING REGIMEN: SEE NARRATIVE AND DOSING TABLE ATTACHED
     Route: 042
     Dates: start: 20181218, end: 20181223
  10. INSULIN HUMAN [Concomitant]
     Active Substance: INSULIN HUMAN
     Indication: PRODUCT USED FOR UNKNOWN INDICATION
     Dosage: 18 DECEMBER TO 19 DECEMBER: 6 IU (6 IU)
     Route: 065
     Dates: start: 20181218, end: 20181219
  11. PREDNISOLONE. [Concomitant]
     Active Substance: PREDNISOLONE
     Indication: PRODUCT USED FOR UNKNOWN INDICATION
     Dosage: COMPLEX DOSAGE REGIMEN: SEE ATTACHED DOSAGE TABLE
     Route: 065
     Dates: start: 20181216
  12. ROCURONIUM BROMIDE. [Concomitant]
     Active Substance: ROCURONIUM BROMIDE
     Indication: PRODUCT USED FOR UNKNOWN INDICATION
     Dosage: 100 MG, QD (100 MG, 1 IN 1 D)
     Route: 065
     Dates: start: 20181215
  13. ROCURONIUM BROMIDE. [Concomitant]
     Active Substance: ROCURONIUM BROMIDE
     Dosage: 50 MG, BID (50 MG, 1 IN 12 HR)
     Route: 065
     Dates: start: 20181223
  14. FUROSEMIDE. [Concomitant]
     Active Substance: FUROSEMIDE
     Indication: PRODUCT USED FOR UNKNOWN INDICATION
     Dosage: COMPLEX DOSAGE REGIMEN: SEE ATTACHED DOSAGE TABLE
     Route: 065
     Dates: start: 20191215
  15. CAPTOPRIL. [Concomitant]
     Active Substance: CAPTOPRIL
     Indication: PRODUCT USED FOR UNKNOWN INDICATION
     Dosage: 25 MG/20 ML (25 MG)
     Route: 065
     Dates: start: 20181218
  16. HALOPERIDOL. [Concomitant]
     Active Substance: HALOPERIDOL
     Indication: PRODUCT USED FOR UNKNOWN INDICATION
     Dosage: 5 MG/1 ML, QD (5 MG, 1 IN 1 D)
     Route: 065
     Dates: start: 20181220, end: 20181220
  17. PROPOFOL. [Concomitant]
     Active Substance: PROPOFOL
     Indication: PRODUCT USED FOR UNKNOWN INDICATION
     Dosage: COMPLEX DOSAGE REGIMEN: SEE ATTACHED DOSAGE TABLE
     Route: 065
     Dates: start: 20181215
  18. ENOXAPARIN SODIUM. [Concomitant]
     Active Substance: ENOXAPARIN SODIUM
     Indication: PRODUCT USED FOR UNKNOWN INDICATION
     Dosage: 40 MG QD (40 MG, 1 IN 1 D)
     Route: 065
     Dates: start: 20181215
  19. THIAMINE. [Concomitant]
     Active Substance: THIAMINE
     Indication: PRODUCT USED FOR UNKNOWN INDICATION
     Dosage: 100 MG/2 ML (100 MG, 1D)
     Route: 065
     Dates: start: 20181217
  20. NIFEDIPINE. [Concomitant]
     Active Substance: NIFEDIPINE
     Indication: PRODUCT USED FOR UNKNOWN INDICATION
     Dosage: 10 MG, QD (10 MG, 1 IN 1 D)
     Route: 060
     Dates: start: 20191218, end: 20191218
  21. QUETIAPINE. [Concomitant]
     Active Substance: QUETIAPINE
     Indication: PRODUCT USED FOR UNKNOWN INDICATION
     Dosage: 25 MG/20 ML (25 MG, 1 IN 8 HR)
     Route: 065
     Dates: start: 20181222, end: 20181222
  22. CAPTOPRIL. [Concomitant]
     Active Substance: CAPTOPRIL
     Dosage: 25 MG/20 ML (25 MG)
     Route: 065
     Dates: start: 20181222, end: 20181222
  23. NOREPINEPHRINE. [Concomitant]
     Active Substance: NOREPINEPHRINE
     Indication: PRODUCT USED FOR UNKNOWN INDICATION
     Dosage: COMPLEX DOSAGE REGIMEN: SEE ATTACHED DOSAGE TABLE
     Route: 065
     Dates: start: 20181215

REACTIONS (1)
  - Hyperthermia malignant [Fatal]
